FAERS Safety Report 10329322 (Version 1)
Quarter: 2014Q3

REPORT INFORMATION
  Report Type: Report from Study
  Country: TN (occurrence: TN)
  Receive Date: 20140721
  Receipt Date: 20140721
  Transmission Date: 20150326
  Serious: Yes (Death)
  Sender: FDA-Public Use
  Company Number: TN-SA-2014SA093507

PATIENT
  Age: 69 Year
  Sex: Female

DRUGS (6)
  1. ISOPHANE INSULIN [Concomitant]
     Active Substance: INSULIN NOS
     Route: 058
  2. CAPTOPRIL. [Concomitant]
     Active Substance: CAPTOPRIL
     Route: 048
  3. CORVASAL [Concomitant]
     Active Substance: LINSIDOMINE
     Route: 048
  4. CINCOR [Concomitant]
     Route: 048
  5. ATORVASTATIN [Concomitant]
     Active Substance: ATORVASTATIN
     Route: 048
  6. PLAVIX [Suspect]
     Active Substance: CLOPIDOGREL BISULFATE
     Indication: ANGINA UNSTABLE
     Dosage: DOSE AND DAILY DOSE: 75 (UNITS NOT SPECIFIED)
     Route: 048
     Dates: start: 20130618, end: 20131110

REACTIONS (1)
  - Cardiac failure [Fatal]

NARRATIVE: CASE EVENT DATE: 2013
